FAERS Safety Report 15794833 (Version 2)
Quarter: 2019Q2

REPORT INFORMATION
  Report Type: Report from Study
  Country: CA (occurrence: CA)
  Receive Date: 20190107
  Receipt Date: 20190426
  Transmission Date: 20190711
  Serious: Yes (Other)
  Sender: FDA-Public Use
  Company Number: CA-PFIZER INC-2018111632

PATIENT
  Age: 83 Year
  Sex: Female

DRUGS (5)
  1. XOLAIR [Suspect]
     Active Substance: OMALIZUMAB
     Indication: CHRONIC SPONTANEOUS URTICARIA
     Dosage: 300 MG, UNK
     Route: 058
     Dates: start: 20180626
  2. DICLOFENAC [Suspect]
     Active Substance: DICLOFENAC
     Dosage: A DOSE OF 8 (UNIT WAS NOT PROVIDED)
     Route: 048
     Dates: start: 2000
  3. XOLAIR [Suspect]
     Active Substance: OMALIZUMAB
     Dosage: 300 MG, UNK
     Route: 058
  4. PANTOPRAZOLE [Suspect]
     Active Substance: PANTOPRAZOLE
     Dosage: UNK
     Route: 065
  5. MONTELUKAST SODIUM. [Concomitant]
     Active Substance: MONTELUKAST SODIUM
     Dosage: UNK
     Route: 065

REACTIONS (9)
  - Pruritus [Recovering/Resolving]
  - Subacute cutaneous lupus erythematosus [Unknown]
  - Drug ineffective [Unknown]
  - Blood pressure systolic increased [Unknown]
  - Systemic lupus erythematosus [Unknown]
  - Scratch [Unknown]
  - Urticaria [Recovered/Resolved]
  - Stress [Unknown]
  - Nasal crusting [Unknown]

NARRATIVE: CASE EVENT DATE: 20180731
